FAERS Safety Report 9481733 (Version 2)
Quarter: 2013Q3

REPORT INFORMATION
  Report Type: Spontaneous
  Country: US (occurrence: US)
  Receive Date: 20130828
  Receipt Date: 20130828
  Transmission Date: 20140515
  Serious: Yes (Hospitalization)
  Sender: FDA-Public Use
  Company Number: US-AMGEN-KDL220330

PATIENT
  Age: 62 Year
  Sex: Female
  Weight: 72.2 kg

DRUGS (16)
  1. ENBREL [Suspect]
     Indication: RHEUMATOID ARTHRITIS
     Dosage: 50 MG, QWK
     Route: 058
     Dates: start: 20060412, end: 20070228
  2. METHOTREXATE [Concomitant]
     Dosage: UNK UNK, UNK
     Dates: start: 200508, end: 200702
  3. ALENDRONATE SODIUM [Concomitant]
     Dosage: 70 MG, QWK
     Route: 048
  4. ACIDOPHILUS [Concomitant]
     Dosage: UNK UNK, BID
     Route: 048
  5. FOLINIC ACID [Concomitant]
  6. PROCHLORPERAZINE EDISYLATE [Concomitant]
     Dosage: UNK UNK, PRN
  7. ONDANSETRON HYDROCHLORIDE [Concomitant]
     Dosage: UNK UNK, PRN
  8. TRAZODONE [Concomitant]
     Dosage: 100 MG, UNK
  9. ALCLOMETASONE DIPROPIONATE [Concomitant]
     Dosage: UNK UNK, PRN
     Route: 061
  10. ACETAMINOPHEN W/OXYCODONE [Concomitant]
     Dosage: UNK UNK, 2 TIMES/WK
  11. BISACODYL [Concomitant]
     Dosage: UNK UNK, PRN
     Route: 048
  12. MIRALAX [Concomitant]
     Dosage: 17 G, UNK
  13. ALPRAZOLAM [Concomitant]
     Dosage: .5 MG, UNK
  14. PROMETHAZINE HYDROCHLORIDE [Concomitant]
     Dosage: UNK UNK, PRN
  15. VICODIN [Concomitant]
  16. DEXTROPROPOXYPHENE NAPSILATE W/ ACETOMINOPHEN [Concomitant]

REACTIONS (13)
  - Lung carcinoma cell type unspecified stage III [Not Recovered/Not Resolved]
  - Procedural pain [Recovering/Resolving]
  - Rheumatoid arthritis [Not Recovered/Not Resolved]
  - Wheezing [Not Recovered/Not Resolved]
  - Crepitations [Unknown]
  - Chills [Unknown]
  - Neck pain [Unknown]
  - Pyrexia [Unknown]
  - Respiratory tract infection [Unknown]
  - Headache [Unknown]
  - Asthenia [Unknown]
  - Fatigue [Unknown]
  - Cough [Unknown]
